FAERS Safety Report 18660223 (Version 3)
Quarter: 2021Q1

REPORT INFORMATION
  Report Type: Spontaneous
  Country: US (occurrence: US)
  Receive Date: 20201224
  Receipt Date: 20210215
  Transmission Date: 20210419
  Serious: Yes (Death, Life-Threatening, Hospitalization, Other)
  Sender: FDA-Public Use
  Company Number: US-DRREDDYS-USA/USA/20/0130295

PATIENT
  Age: 65 Year
  Sex: Male

DRUGS (3)
  1. MYCOPHENOLIC ACID. [Suspect]
     Active Substance: MYCOPHENOLIC ACID
     Indication: IMMUNOSUPPRESSANT DRUG THERAPY
  2. PREDNISONE. [Suspect]
     Active Substance: PREDNISONE
     Indication: IMMUNOSUPPRESSANT DRUG THERAPY
  3. TACROLIMUS. [Suspect]
     Active Substance: TACROLIMUS
     Indication: IMMUNOSUPPRESSANT DRUG THERAPY

REACTIONS (17)
  - Clostridium difficile colitis [Unknown]
  - Colitis [Unknown]
  - Mycobacterium haemophilum infection [Fatal]
  - Acidosis [Unknown]
  - Osteomyelitis acute [Fatal]
  - Pleural effusion [Unknown]
  - Acarodermatitis [Unknown]
  - Skin lesion [Unknown]
  - Escherichia infection [Unknown]
  - Urosepsis [Unknown]
  - Tenosynovitis [Unknown]
  - Septic shock [Fatal]
  - Brain abscess [Fatal]
  - Renal failure [Unknown]
  - Abscess limb [Unknown]
  - Osteomyelitis chronic [Fatal]
  - Generalised oedema [Unknown]
